FAERS Safety Report 8954254 (Version 2)
Quarter: 2014Q4

REPORT INFORMATION
  Report Type: Report from Study
  Country: US (occurrence: US)
  Receive Date: 20121207
  Receipt Date: 20141124
  Transmission Date: 20150529
  Serious: Yes (Hospitalization)
  Sender: FDA-Public Use
  Company Number: PHHO2012US017475

PATIENT
  Age: 69 Year
  Sex: Male
  Weight: 86.6 kg

DRUGS (4)
  1. PACLITAXEL. [Suspect]
     Active Substance: PACLITAXEL
     Indication: MALIGNANT NEOPLASM OF UNKNOWN PRIMARY SITE
     Dosage: 369 MG, UNK
     Route: 065
     Dates: start: 20121030, end: 20121030
  2. AFINITOR [Suspect]
     Active Substance: EVEROLIMUS
     Dosage: 20 UNK, UNK
     Route: 048
     Dates: start: 20121113
  3. AFINITOR [Suspect]
     Active Substance: EVEROLIMUS
     Indication: MALIGNANT NEOPLASM OF UNKNOWN PRIMARY SITE
     Dosage: 60 MG, UNK
     Route: 048
     Dates: start: 20121030, end: 20121106
  4. CARBOPLATIN. [Suspect]
     Active Substance: CARBOPLATIN
     Indication: MALIGNANT NEOPLASM OF UNKNOWN PRIMARY SITE
     Dosage: 553 MG, UNK
     Route: 065
     Dates: start: 20121030, end: 20121030

REACTIONS (2)
  - Lung infection [Recovered/Resolved]
  - Constipation [Recovered/Resolved]

NARRATIVE: CASE EVENT DATE: 20121107
